FAERS Safety Report 19998739 (Version 1)
Quarter: 2021Q4

REPORT INFORMATION
  Report Type: Spontaneous
  Country: BR (occurrence: BR)
  Receive Date: 20211026
  Receipt Date: 20211026
  Transmission Date: 20220304
  Serious: Yes (Other)
  Sender: FDA-Public Use
  Company Number: BR-ABBOTT-2021A-1341554

PATIENT
  Sex: Female
  Weight: 32 kg

DRUGS (2)
  1. DEPAKOTE [Suspect]
     Active Substance: DIVALPROEX SODIUM
     Indication: Epilepsy
     Dosage: DAILY DOSE 750 MILLIGRAM,3 CAPSULES IN THE MORNING AND 3 CAPSULES AT NIGHT.
     Route: 048
  2. DEPAKOTE [Suspect]
     Active Substance: DIVALPROEX SODIUM
     Dosage: TREATMENT INCREASED TO 4CAPS.BUT IT STARTED ATTACKING PATIENT^S LIVER AND DOSAGE DECREASED
     Route: 048

REACTIONS (9)
  - Seizure [Unknown]
  - Liver disorder [Unknown]
  - Agitation [Not Recovered/Not Resolved]
  - Anger [Not Recovered/Not Resolved]
  - Product use issue [Unknown]
  - Off label use [Unknown]
  - Poor quality product administered [Unknown]
  - Product quality issue [Unknown]
  - Aggression [Not Recovered/Not Resolved]

NARRATIVE: CASE EVENT DATE: 20211001
